APPROVED DRUG PRODUCT: CEFTRIAXONE
Active Ingredient: CEFTRIAXONE SODIUM
Strength: EQ 10GM BASE/VIAL
Dosage Form/Route: INJECTABLE;INJECTION
Application: A065504 | Product #001
Applicant: AUROBINDO PHARMA LTD
Approved: Jul 31, 2008 | RLD: No | RS: No | Type: DISCN